FAERS Safety Report 9927450 (Version 1)
Quarter: 2014Q1

REPORT INFORMATION
  Report Type: Spontaneous
  Country: PT (occurrence: PT)
  Receive Date: 20140227
  Receipt Date: 20140227
  Transmission Date: 20141002
  Serious: Yes (Other)
  Sender: FDA-Public Use
  Company Number: PT-ROCHE-1352784

PATIENT
  Age: 50 Year
  Sex: Female

DRUGS (1)
  1. ROCEPHIN [Suspect]
     Indication: MASTITIS
     Route: 042
     Dates: start: 200912

REACTIONS (1)
  - Ecchymosis [Recovered/Resolved]
